FAERS Safety Report 5881203-6 (Version None)
Quarter: 2008Q3

REPORT INFORMATION
  Report Type: 
  Country: None (occurrence: None)
  Receive Date: 20080912
  Receipt Date: 20080621
  Transmission Date: 20090109
  Serious: No
  Sender: FDA-Public Use
  Company Number: US-ABBOTT-08P-163-0459179-00

PATIENT
  Sex: Female
  Weight: 108.96 kg

DRUGS (9)
  1. HUMIRA [Suspect]
     Indication: CROHN'S DISEASE
     Route: 058
     Dates: start: 20070801
  2. HUMIRA [Suspect]
     Indication: ARTHRITIS
  3. PREDNISONE TAB [Concomitant]
     Indication: CROHN'S DISEASE
     Route: 048
  4. PREDNISONE TAB [Concomitant]
     Indication: ARTHRITIS
  5. SPIRONOLACTONE [Concomitant]
     Indication: SWELLING
     Route: 048
  6. SPIRONOLACTONE [Concomitant]
     Indication: HYPERTENSION
  7. PREGABALIN [Concomitant]
     Indication: ARTHRITIS
     Route: 048
     Dates: start: 20080301
  8. HYDROMORPHONE HYDROCHLORIDE [Concomitant]
     Indication: RIB FRACTURE
     Route: 048
     Dates: start: 20080101
  9. DIABETIC MEDICATION [Concomitant]
     Indication: DIABETES MELLITUS
     Route: 048

REACTIONS (8)
  - ABDOMINAL PAIN UPPER [None]
  - DIARRHOEA [None]
  - DYSPNOEA [None]
  - HOT FLUSH [None]
  - JOINT STIFFNESS [None]
  - NAUSEA [None]
  - PAIN IN EXTREMITY [None]
  - RIB FRACTURE [None]
